FAERS Safety Report 22716290 (Version 2)
Quarter: 2024Q2

REPORT INFORMATION
  Report Type: Spontaneous
  Country: US (occurrence: US)
  Receive Date: 20230718
  Receipt Date: 20240504
  Transmission Date: 20240716
  Serious: Yes (Life-Threatening, Hospitalization, Other)
  Sender: FDA-Public Use
  Company Number: US-Accord-364022

PATIENT
  Age: 22 Year
  Sex: Female

DRUGS (7)
  1. MYCOPHENOLIC ACID [Suspect]
     Active Substance: MYCOPHENOLIC ACID
     Indication: Autoimmune hepatitis
  2. TACROLIMUS [Suspect]
     Active Substance: TACROLIMUS
     Indication: Autoimmune hepatitis
  3. EVEROLIMUS [Suspect]
     Active Substance: EVEROLIMUS
     Indication: Autoimmune hepatitis
  4. THYMOCYTE IMMUNE GLOBULIN NOS [Suspect]
     Active Substance: THYMOCYTE IMMUNE GLOBULIN NOS
     Indication: Autoimmune hepatitis
  5. HUMAN IMMUNOGLOBULIN G [Suspect]
     Active Substance: HUMAN IMMUNOGLOBULIN G
     Indication: Autoimmune hepatitis
  6. PREDNISONE [Suspect]
     Active Substance: PREDNISONE
     Indication: Autoimmune hepatitis
     Route: 048
  7. SOLU-MEDROL [Suspect]
     Active Substance: METHYLPREDNISOLONE SODIUM SUCCINATE
     Indication: Autoimmune hepatitis
     Route: 042

REACTIONS (5)
  - Drug ineffective for unapproved indication [Unknown]
  - Acute respiratory failure [Recovered/Resolved]
  - Septic shock [Recovered/Resolved]
  - Pathogen resistance [Recovered/Resolved]
  - Escherichia sepsis [Recovered/Resolved]
